FAERS Safety Report 9302232 (Version 2)
Quarter: 2014Q1

REPORT INFORMATION
  Report Type: Spontaneous
  Country: US (occurrence: US)
  Receive Date: 20130522
  Receipt Date: 20140131
  Transmission Date: 20141002
  Serious: Yes (Hospitalization)
  Sender: FDA-Public Use
  Company Number: US-B.I. PHARMACEUTICALS,INC./RIDGEFIELD-2013-BI-14119BP

PATIENT
  Age: 79 Year
  Sex: Male
  Weight: 99.79 kg

DRUGS (18)
  1. PRADAXA [Suspect]
     Indication: ANTICOAGULANT THERAPY
     Dosage: 300 MG
     Dates: start: 20120207, end: 20120305
  2. ASACOL [Concomitant]
  3. METROGEL [Concomitant]
  4. LOMOTIL [Concomitant]
  5. NEURONTIN [Concomitant]
  6. GLIPIZIDE [Concomitant]
  7. VITAMIN D [Concomitant]
  8. MULTIVITAMIN [Concomitant]
  9. IRON [Concomitant]
  10. VITAMIN B12 [Concomitant]
  11. LASIX [Concomitant]
  12. METOPROLOL [Concomitant]
  13. PRAVASTATIN [Concomitant]
  14. PACERONE [Concomitant]
  15. LORTAB [Concomitant]
  16. REQUIP [Concomitant]
  17. TRAMADOL [Concomitant]
  18. GLUCOSAMINE CHONDROITIN [Concomitant]

REACTIONS (1)
  - Gastrointestinal haemorrhage [Unknown]
